FAERS Safety Report 24074402 (Version 1)
Quarter: 2024Q3

REPORT INFORMATION
  Report Type: Spontaneous
  Country: US (occurrence: US)
  Receive Date: 20240710
  Receipt Date: 20240710
  Transmission Date: 20241017
  Serious: No
  Sender: BOEHRINGER INGELHEIM
  Company Number: US-BoehringerIngelheim-2024-BI-038946

PATIENT
  Sex: Male

DRUGS (2)
  1. OFEV [Suspect]
     Active Substance: NINTEDANIB
     Indication: Product used for unknown indication
     Dosage: 150 MG
  2. OFEV [Suspect]
     Active Substance: NINTEDANIB
     Dosage: 100 MG

REACTIONS (2)
  - Nausea [Not Recovered/Not Resolved]
  - Illness [Unknown]
